FAERS Safety Report 6146236-3 (Version None)
Quarter: 2009Q2

REPORT INFORMATION
  Report Type: 
  Country: None (occurrence: None)
  Receive Date: 20090403
  Receipt Date: 20090319
  Transmission Date: 20091009
  Serious: Yes (Hospitalization)
  Sender: FDA-Public Use
  Company Number: 2008AL011470

PATIENT
  Age: 48 Year
  Sex: Female

DRUGS (23)
  1. DIGOXIN [Suspect]
     Indication: ARRHYTHMIA
     Dosage: 0.25MG, DAILY, PO
     Route: 048
  2. TOPROL-XL [Concomitant]
  3. TAMBOCOR [Concomitant]
  4. MONOPRIL [Concomitant]
  5. AMITRIPTYLINE HCL [Concomitant]
  6. PLAQUENIL [Concomitant]
  7. IMURAN [Concomitant]
  8. ZETIA [Concomitant]
  9. NITROGLYCERIN [Concomitant]
  10. POTASSIUM CHLORIDE [Concomitant]
  11. VITAMIN B COMPLEX CAP [Concomitant]
  12. NEURONTIN [Concomitant]
  13. FOSINOPRIL SODIUM [Concomitant]
  14. INDAPAMIDE [Concomitant]
  15. TOPROL-XL [Concomitant]
  16. FLECAINIDE ACETATE [Concomitant]
  17. FLUOXETINE HCL [Concomitant]
  18. HYDROXYCHLOROQUINE [Concomitant]
  19. METOPROLOL TARTRATE [Concomitant]
  20. AZATHIOPRINE [Concomitant]
  21. CIPROFLOXACIN [Concomitant]
  22. NITROFURANTOIN [Concomitant]
  23. GABAPENTIN [Concomitant]

REACTIONS (10)
  - ASTHENIA [None]
  - BLOOD PRESSURE INCREASED [None]
  - CHEST PAIN [None]
  - CORONARY ARTERY DISEASE [None]
  - DYSPNOEA [None]
  - HEADACHE [None]
  - HYPERHIDROSIS [None]
  - MITRAL VALVE INCOMPETENCE [None]
  - NEUROPATHY PERIPHERAL [None]
  - SUPRAVENTRICULAR TACHYCARDIA [None]
